FAERS Safety Report 8478580 (Version 2)
Quarter: 2012Q4

REPORT INFORMATION
  Report Type: 
  Country: CA (occurrence: CA)
  Receive Date: 20120327
  Receipt Date: 20120921
  Transmission Date: 20130627
  Serious: Yes (Disabling, Other)
  Sender: FDA-Public Use
  Company Number: PHHY2012CA026167

PATIENT
  Sex: Female

DRUGS (2)
  1. ACLASTA [Suspect]
     Indication: OSTEOPOROSIS
     Route: 042
     Dates: start: 20110216
  2. FOSAMAX [Concomitant]
     Dosage: UNK
     Dates: start: 200002

REACTIONS (2)
  - Osteonecrosis of jaw [Recovered/Resolved]
  - Mouth ulceration [Unknown]
